FAERS Safety Report 5266977-X (Version None)
Quarter: 2007Q1

REPORT INFORMATION
  Report Type: 
  Country: None (occurrence: None)
  Receive Date: 20070313
  Receipt Date: 20070302
  Transmission Date: 20070707
  Serious: Yes (Hospitalization)
  Sender: FDA-Public Use
  Company Number: 231676K07USA

PATIENT
  Age: 42 Year
  Sex: Female

DRUGS (1)
  1. REBIF [Suspect]
     Indication: MULTIPLE SCLEROSIS
     Dosage: 44 MCG, 3 IN 1 WEEKS, SUBCUTANEOUS
     Route: 058
     Dates: start: 20051231, end: 20070216

REACTIONS (5)
  - FALL [None]
  - FEELING ABNORMAL [None]
  - FIBULA FRACTURE [None]
  - FOOT FRACTURE [None]
  - TREMOR [None]
